FAERS Safety Report 8615356-3 (Version None)
Quarter: 2012Q3

REPORT INFORMATION
  Report Type: 
  Country: None (occurrence: None)
  Receive Date: 20120823
  Receipt Date: 20120814
  Transmission Date: 20120928
  Serious: Yes (Hospitalization, Disabling, Other)
  Sender: FDA-Public Use
  Company Number: US-MSD-1204USA02200

PATIENT

DRUGS (6)
  1. FOSAMAX PLUS D [Suspect]
     Dosage: 70/2800
     Route: 048
  2. ACTONEL [Suspect]
     Indication: OSTEOPOROSIS
     Dosage: UNK
     Dates: start: 20010101
  3. OS-CAL (CALCITRIOL) [Concomitant]
  4. VITAMINS (UNSPECIFIED) [Concomitant]
     Dosage: UNK
     Dates: start: 19950101
  5. FOSAMAX [Suspect]
     Indication: OSTEOPOROSIS
     Dosage: UNK
     Route: 048
     Dates: start: 20000101, end: 20070601
  6. FORTEO [Concomitant]
     Indication: OSTEOPOROSIS

REACTIONS (34)
  - SURGERY [None]
  - DENTAL PLAQUE [None]
  - TOOTH INFECTION [None]
  - VITAMIN D DEFICIENCY [None]
  - EAR PAIN [None]
  - OSTEONECROSIS OF JAW [None]
  - DENTAL CARIES [None]
  - GINGIVAL PAIN [None]
  - GLAUCOMA [None]
  - LOW TURNOVER OSTEOPATHY [None]
  - TOOTH FRACTURE [None]
  - NEUROPATHY PERIPHERAL [None]
  - ABDOMINAL DISCOMFORT [None]
  - OSTEOPOROSIS [None]
  - SPINAL FRACTURE [None]
  - TOOTH DISORDER [None]
  - UPPER LIMB FRACTURE [None]
  - RASH PRURITIC [None]
  - STRESS FRACTURE [None]
  - TOOTH DEPOSIT [None]
  - GINGIVAL BLEEDING [None]
  - LIP SWELLING [None]
  - GINGIVAL RECESSION [None]
  - FATIGUE [None]
  - OSTEOARTHRITIS [None]
  - ABDOMINAL DISTENSION [None]
  - FEMUR FRACTURE [None]
  - GLOSSODYNIA [None]
  - POLYMYALGIA RHEUMATICA [None]
  - PATHOLOGICAL FRACTURE [None]
  - ENDODONTIC PROCEDURE [None]
  - FOREARM FRACTURE [None]
  - WRIST FRACTURE [None]
  - HEADACHE [None]
